FAERS Safety Report 23762515 (Version 1)
Quarter: 2024Q2

REPORT INFORMATION
  Report Type: Spontaneous
  Country: CN (occurrence: CN)
  Receive Date: 20240419
  Receipt Date: 20240419
  Transmission Date: 20240716
  Serious: Yes (Hospitalization, Other)
  Sender: FDA-Public Use
  Company Number: CN-009507513-2404CHN007575

PATIENT
  Age: 68 Year
  Sex: Female
  Weight: 60 kg

DRUGS (1)
  1. NOXAFIL [Suspect]
     Active Substance: POSACONAZOLE
     Indication: Antifungal prophylaxis
     Dosage: 200 MG, TID
     Route: 048
     Dates: start: 20240401, end: 20240403

REACTIONS (6)
  - Liver injury [Recovering/Resolving]
  - Pulse abnormal [Unknown]
  - Blood pressure abnormal [Unknown]
  - Breath sounds abnormal [Unknown]
  - Rales [Unknown]
  - Heart rate abnormal [Unknown]

NARRATIVE: CASE EVENT DATE: 20240403
